FAERS Safety Report 6565169-1 (Version None)
Quarter: 2010Q1

REPORT INFORMATION
  Report Type: 
  Country: None (occurrence: None)
  Receive Date: 20100201
  Receipt Date: 20100127
  Transmission Date: 20100710
  Serious: Yes (Hospitalization)
  Sender: FDA-Public Use
  Company Number: B0629324A

PATIENT
  Sex: Female

DRUGS (2)
  1. AUGMENTIN '125' [Suspect]
     Indication: BRONCHITIS
     Dosage: 1G THREE TIMES PER DAY
     Route: 048
     Dates: start: 20091204, end: 20091211
  2. ALLOPURINOL [Suspect]
     Dosage: 100MG PER DAY
     Route: 048
     Dates: start: 20080101

REACTIONS (6)
  - ACUTE GENERALISED EXANTHEMATOUS PUSTULOSIS [None]
  - RASH [None]
  - RASH PUSTULAR [None]
  - SKIN DISORDER [None]
  - SKIN LESION [None]
  - TOXIC SKIN ERUPTION [None]
